FAERS Safety Report 8777553 (Version 1)
Quarter: 2012Q4

REPORT INFORMATION
  Report Type: Report from Study
  Country: HU (occurrence: HU)
  Receive Date: 20120912
  Receipt Date: 20120912
  Transmission Date: 20130627
  Serious: Yes (Other)
  Sender: FDA-Public Use
  Company Number: HU-ROCHE-1117943

PATIENT
  Sex: Female

DRUGS (2)
  1. XELODA [Suspect]
     Indication: BREAST CANCER METASTATIC
     Route: 048
     Dates: start: 20090909, end: 200912
  2. XELODA [Suspect]
     Indication: BREAST CANCER METASTATIC

REACTIONS (2)
  - Metastases to spleen [Unknown]
  - Metastases to bone [Unknown]
